FAERS Safety Report 6329643-5 (Version None)
Quarter: 2009Q3

REPORT INFORMATION
  Report Type: 
  Country: None (occurrence: None)
  Receive Date: 20090826
  Receipt Date: 20090818
  Transmission Date: 20100115
  Serious: Yes (Other)
  Sender: FDA-Public Use
  Company Number: FR-BRISTOL-MYERS SQUIBB COMPANY-14676753

PATIENT
  Age: 68 Year
  Sex: Male

DRUGS (3)
  1. LYSODREN [Suspect]
     Indication: ADRENOCORTICAL CARCINOMA
     Dates: start: 20080404
  2. HYDROCORTISONE [Concomitant]
     Indication: BLOOD CORTICOTROPHIN ABNORMAL
     Dates: start: 20081001
  3. ZANIDIP [Concomitant]

REACTIONS (2)
  - DYSLIPIDAEMIA [None]
  - GAMMA-GLUTAMYLTRANSFERASE INCREASED [None]
